FAERS Safety Report 18237427 (Version 2)
Quarter: 2020Q3

REPORT INFORMATION
  Report Type: Report from Study
  Country: US (occurrence: US)
  Receive Date: 20200907
  Receipt Date: 20200925
  Transmission Date: 20201103
  Serious: Yes (Hospitalization, Other)
  Sender: FDA-Public Use
  Company Number: US-PFIZER INC-2020225381

PATIENT
  Age: 71 Year
  Sex: Female

DRUGS (3)
  1. IBRANCE [Suspect]
     Active Substance: PALBOCICLIB
     Indication: BREAST CANCER FEMALE
     Dosage: 125 MG, CYCLIC (DAILY FOR 21 DAYS ON AND 7 DAYS OFF)
     Route: 048
     Dates: start: 20200608, end: 20200706
  2. IBRANCE [Suspect]
     Active Substance: PALBOCICLIB
     Dosage: 100 MG, CYCLIC (DAILY, FOR 21 DAYS OF 28 DAY CYCLE)
     Route: 048
     Dates: start: 20200824, end: 202009
  3. IBRANCE [Suspect]
     Active Substance: PALBOCICLIB
     Dosage: 125 MG, ALTERNATE DAY (EVERY OTHER DAY)
     Route: 048
     Dates: start: 20200716, end: 20200731

REACTIONS (27)
  - Fatigue [Unknown]
  - Decreased appetite [Unknown]
  - Confusional state [Unknown]
  - Migraine [Unknown]
  - Visual impairment [Unknown]
  - Epistaxis [Unknown]
  - Night sweats [Unknown]
  - Platelet count decreased [Unknown]
  - Leukopenia [Recovering/Resolving]
  - Asthenia [Unknown]
  - Pneumonia [Unknown]
  - Therapeutic response unexpected [Unknown]
  - Vomiting [Recovered/Resolved]
  - Delusion [Unknown]
  - Irritability [Unknown]
  - Anaemia [Recovering/Resolving]
  - Sepsis [Unknown]
  - Pain [Not Recovered/Not Resolved]
  - Emotional disorder [Unknown]
  - Anxiety [Unknown]
  - Chest pain [Unknown]
  - Vision blurred [Not Recovered/Not Resolved]
  - Back pain [Unknown]
  - Oesophageal disorder [Unknown]
  - Delirium [Unknown]
  - Ocular discomfort [Unknown]
  - Hypersomnia [Unknown]

NARRATIVE: CASE EVENT DATE: 2020
